FAERS Safety Report 9948226 (Version 1)
Quarter: 2014Q1

REPORT INFORMATION
  Report Type: Spontaneous
  Country: US (occurrence: None)
  Receive Date: 20140122
  Receipt Date: 20140122
  Transmission Date: 20141002
  Serious: No
  Sender: FDA-Public Use
  Company Number: AP356-00279-SPO-US

PATIENT
  Age: 64 Year
  Sex: Female
  Weight: 88.63 kg

DRUGS (3)
  1. BELVIQ (LORCASERIN HYDROCHLORIDE) [Suspect]
     Indication: WEIGHT DECREASED
     Route: 048
     Dates: start: 20111025
  2. SYNTROID (LEVOTHYROXINE SODIUM) [Concomitant]
  3. LIPITOR (ATORASTATIN CALCIUM) [Concomitant]

REACTIONS (2)
  - Dizziness [None]
  - Fatigue [None]
